FAERS Safety Report 19092597 (Version 1)
Quarter: 2021Q2

REPORT INFORMATION
  Report Type: Spontaneous
  Country: US (occurrence: US)
  Receive Date: 20210405
  Receipt Date: 20210405
  Transmission Date: 20210717
  Serious: Yes (Other)
  Sender: FDA-Public Use
  Company Number: US-MYLANLABS-2021M1018772

PATIENT
  Age: 48 Year
  Sex: Female
  Weight: 58.97 kg

DRUGS (4)
  1. COVID?19 VACCINE NOS. [Suspect]
     Active Substance: COVID-19 VACCINE NOS
     Indication: PRODUCT USED FOR UNKNOWN INDICATION
     Dosage: UNK
     Dates: start: 20210316
  2. KEPPRA [Concomitant]
     Active Substance: LEVETIRACETAM
     Dosage: 4000 MILLIGRAM, QD
  3. DIVALPROEX [Concomitant]
     Active Substance: DIVALPROEX SODIUM
     Indication: EPILEPSY
     Dosage: 500 MILLIGRAM, QD
  4. LEVETIRACETAM TABLETS, USP [Suspect]
     Active Substance: LEVETIRACETAM
     Indication: EPILEPSY
     Dosage: 5000 MILLIGRAM
     Route: 048

REACTIONS (6)
  - Mood altered [Unknown]
  - Cognitive disorder [Unknown]
  - Malaise [Unknown]
  - Seizure [Unknown]
  - Headache [Recovering/Resolving]
  - Memory impairment [Unknown]

NARRATIVE: CASE EVENT DATE: 20210317
